FAERS Safety Report 22372949 (Version 1)
Quarter: 2023Q2

REPORT INFORMATION
  Report Type: Spontaneous
  Country: BR (occurrence: BR)
  Receive Date: 20230526
  Receipt Date: 20230526
  Transmission Date: 20230721
  Serious: Yes (Other)
  Sender: FDA-Public Use
  Company Number: BR-FreseniusKabi-FK202307336

PATIENT
  Age: 69 Year
  Sex: Female

DRUGS (1)
  1. VANCOMYCIN [Suspect]
     Active Substance: VANCOMYCIN
     Indication: Antibiotic prophylaxis
     Dosage: 1MG/0.1ML

REACTIONS (3)
  - Glaucoma [Unknown]
  - Haemorrhagic occlusive retinal vasculitis [Recovered/Resolved with Sequelae]
  - Drug hypersensitivity [Unknown]
